FAERS Safety Report 4809082-6 (Version None)
Quarter: 2005Q4

REPORT INFORMATION
  Report Type: 
  Country: None (occurrence: None)
  Receive Date: 20051021
  Receipt Date: 19990728
  Transmission Date: 20060501
  Serious: No
  Sender: FDA-Public Use
  Company Number: AU_990800734

PATIENT
  Sex: Female

DRUGS (5)
  1. ZYPREXA [Suspect]
     Dosage: 2.5 MG/1 DAY
  2. VENLAFAXINE [Concomitant]
  3. AMILORIDE HCL [Concomitant]
  4. ASPIRIN [Concomitant]
  5. DIGOXIN [Concomitant]

REACTIONS (2)
  - ORTHOSTATIC HYPOTENSION [None]
  - PANCYTOPENIA [None]
